FAERS Safety Report 6511750-5 (Version None)
Quarter: 2009Q4

REPORT INFORMATION
  Report Type: 
  Country: None (occurrence: None)
  Receive Date: 20091222
  Receipt Date: 20090402
  Transmission Date: 20100525
  Serious: No
  Sender: FDA-Public Use
  Company Number: US-ASTRAZENECA-2009UW08366

PATIENT
  Age: 59 Year
  Sex: Female

DRUGS (4)
  1. CRESTOR [Suspect]
     Indication: BLOOD CHOLESTEROL INCREASED
     Route: 048
  2. TENORMIN [Concomitant]
  3. AMOXICILLIN [Concomitant]
  4. GLUCOPHAGE [Concomitant]

REACTIONS (4)
  - FATIGUE [None]
  - FEELING HOT [None]
  - INSOMNIA [None]
  - PERIPHERAL COLDNESS [None]
